FAERS Safety Report 4936378-X (Version None)
Quarter: 2006Q1

REPORT INFORMATION
  Report Type: 
  Country: None (occurrence: None)
  Receive Date: 20060302
  Receipt Date: 20060216
  Transmission Date: 20060701
  Serious: Yes (Other)
  Sender: FDA-Public Use
  Company Number: US200602003494

PATIENT
  Sex: 0

DRUGS (1)
  1. XIGRIS [Suspect]
     Indication: PNEUMONIA
     Dosage: INTRAVENOUS
     Route: 028
     Dates: start: 20060201, end: 20060216

REACTIONS (3)
  - ACTIVATED PARTIAL THROMBOPLASTIN TIME PROLONGED [None]
  - INTERNATIONAL NORMALISED RATIO INCREASED [None]
  - PLATELET COUNT DECREASED [None]
